FAERS Safety Report 6861460-X (Version None)
Quarter: 2010Q3

REPORT INFORMATION
  Report Type: 
  Country: None (occurrence: None)
  Receive Date: 20100720
  Receipt Date: 20100712
  Transmission Date: 20110219
  Serious: Yes (Other)
  Sender: FDA-Public Use
  Company Number: US-AMGEN-KDL423902

PATIENT
  Sex: Male

DRUGS (1)
  1. ENBREL [Suspect]
     Indication: PSORIASIS
     Dates: start: 20100528

REACTIONS (4)
  - ANGER [None]
  - FLAT AFFECT [None]
  - INTENTIONAL OVERDOSE [None]
  - SUICIDE ATTEMPT [None]
